FAERS Safety Report 4408912-X (Version None)
Quarter: 2004Q3

REPORT INFORMATION
  Report Type: 
  Country: None (occurrence: None)
  Receive Date: 20040727
  Receipt Date: 20040615
  Transmission Date: 20050211
  Serious: Yes (Life-Threatening, Hospitalization, Disabling)
  Sender: FDA-Public Use
  Company Number: DE-BRISTOL-MYERS SQUIBB COMPANY-12616611

PATIENT
  Age: 62 Year
  Sex: Male
  Weight: 58 kg

DRUGS (3)
  1. ETOPOPHOS PRESERVATIVE FREE [Suspect]
     Indication: SMALL CELL LUNG CANCER STAGE UNSPECIFIED
     Route: 042
     Dates: start: 20040604, end: 20040604
  2. GRANISETRON [Concomitant]
     Indication: VOMITING
     Route: 042
  3. DEXAMETHASONE [Concomitant]
     Indication: PREMEDICATION
     Route: 042

REACTIONS (3)
  - ANAPHYLACTIC REACTION [None]
  - CEREBRAL ISCHAEMIA [None]
  - VISUAL ACUITY REDUCED [None]
